FAERS Safety Report 20081529 (Version 1)
Quarter: 2021Q4

REPORT INFORMATION
  Report Type: Spontaneous
  Country: CA (occurrence: CA)
  Receive Date: 20211117
  Receipt Date: 20211117
  Transmission Date: 20220303
  Serious: Yes (Other)
  Sender: FDA-Public Use
  Company Number: CA-BAYER-2021A246053

PATIENT
  Age: 79 Year
  Sex: Female

DRUGS (1)
  1. LORATADINE [Suspect]
     Active Substance: LORATADINE

REACTIONS (2)
  - Burn oral cavity [None]
  - Product solubility abnormal [None]

NARRATIVE: CASE EVENT DATE: 20210811
